FAERS Safety Report 8452763-6 (Version None)
Quarter: 2012Q2

REPORT INFORMATION
  Report Type: 
  Country: None (occurrence: None)
  Receive Date: 20120620
  Receipt Date: 20120425
  Transmission Date: 20120825
  Serious: No
  Sender: FDA-Public Use
  Company Number: US-VERTEX PHARMACEUTICALS INC.-AE-2012-005950

PATIENT
  Sex: Female
  Weight: 54.48 kg

DRUGS (3)
  1. INCIVEK [Suspect]
     Indication: HEPATITIS C
     Route: 048
     Dates: start: 20120422
  2. PEGASYS [Concomitant]
     Indication: HEPATITIS C
     Dates: start: 20120422
  3. RIBAVIRIN [Concomitant]
     Indication: HEPATITIS C
     Dates: start: 20120422

REACTIONS (7)
  - INFLUENZA LIKE ILLNESS [None]
  - DEPRESSED MOOD [None]
  - DIZZINESS [None]
  - INSOMNIA [None]
  - PRESYNCOPE [None]
  - FATIGUE [None]
  - MYALGIA [None]
